FAERS Safety Report 8602928-5 (Version None)
Quarter: 2012Q3

REPORT INFORMATION
  Report Type: 
  Country: None (occurrence: None)
  Receive Date: 20120817
  Receipt Date: 20120815
  Transmission Date: 20120928
  Serious: Yes (Death, Hospitalization)
  Sender: FDA-Public Use
  Company Number: SE-B.I. PHARMACEUTICALS,INC./RIDGEFIELD-2012-SW-00120SW

PATIENT
  Age: 49 Year
  Sex: Male
  Weight: 120 kg

DRUGS (7)
  1. OXYCONTIN [Concomitant]
     Dosage: 20 MG
  2. PRADAXA [Suspect]
     Indication: THROMBOSIS PROPHYLAXIS
     Dates: end: 20111218
  3. OXYCODONE HYDROCHLORIDE [Concomitant]
     Dosage: STRENGTH: 5 MG
  4. BUPRENORPHINE [Concomitant]
     Dosage: 5 MCG/H
  5. PRADAXA [Suspect]
     Indication: ORTHOPEDIC PROCEDURE
  6. ACETAMINOPHEN [Concomitant]
     Dosage: 4000 MG
  7. INNOHEP [Concomitant]
     Dosage: 714.2857 U

REACTIONS (2)
  - HAEMORRHAGIC STROKE [None]
  - PULMONARY EMBOLISM [None]
